FAERS Safety Report 19155694 (Version 2)
Quarter: 2021Q2

REPORT INFORMATION
  Report Type: Spontaneous
  Country: US (occurrence: US)
  Receive Date: 20210419
  Receipt Date: 20210513
  Transmission Date: 20210717
  Serious: Yes (Other)
  Sender: FDA-Public Use
  Company Number: US-ASTRAZENECA-2021A313909

PATIENT
  Sex: Female
  Weight: 104.3 kg

DRUGS (1)
  1. BYDUREON [Suspect]
     Active Substance: EXENATIDE
     Indication: BLOOD GLUCOSE ABNORMAL
     Route: 058

REACTIONS (9)
  - Large intestine polyp [Unknown]
  - Wrong technique in device usage process [Unknown]
  - Incorrect dose administered by device [Unknown]
  - Tooth injury [Unknown]
  - Upper limb fracture [Unknown]
  - Limb injury [Unknown]
  - Visual impairment [Unknown]
  - Device issue [Unknown]
  - Intentional device misuse [Unknown]
